FAERS Safety Report 8334976-7 (Version None)
Quarter: 2012Q2

REPORT INFORMATION
  Report Type: 
  Country: None (occurrence: None)
  Receive Date: 20120503
  Receipt Date: 20120425
  Transmission Date: 20120825
  Serious: Yes (Other)
  Sender: FDA-Public Use
  Company Number: CA-JNJFOC-20110503025

PATIENT
  Sex: Female

DRUGS (2)
  1. REMICADE [Suspect]
     Indication: COLITIS ULCERATIVE
     Dosage: INDUCTION TREATMENTS STARTED
     Route: 042
     Dates: start: 20120301
  2. REMICADE [Suspect]
     Route: 042
     Dates: start: 20110420, end: 20110801

REACTIONS (6)
  - RHINORRHOEA [None]
  - NASOPHARYNGITIS [None]
  - COUGH [None]
  - HEADACHE [None]
  - CAESAREAN SECTION [None]
  - MATERNAL EXPOSURE DURING PREGNANCY [None]
